FAERS Safety Report 24689862 (Version 1)
Quarter: 2024Q4

REPORT INFORMATION
  Report Type: Report from Study
  Country: US (occurrence: US)
  Receive Date: 20241203
  Receipt Date: 20241203
  Transmission Date: 20250114
  Serious: No
  Sender: BIOVITRUM
  Company Number: US-BIOVITRUM-2024-US-014551

PATIENT
  Age: 69 Year
  Sex: Female

DRUGS (1)
  1. KINERET [Suspect]
     Active Substance: ANAKINRA
     Indication: Neuroendocrine tumour
     Dosage: DAILY
     Route: 058
     Dates: start: 20241114

REACTIONS (6)
  - Malaise [Unknown]
  - Off label use [Not Recovered/Not Resolved]
  - Injection site swelling [Unknown]
  - Injection site erythema [Unknown]
  - Escherichia infection [Unknown]
  - Erythema [Unknown]
